FAERS Safety Report 24138579 (Version 2)
Quarter: 2024Q3

REPORT INFORMATION
  Report Type: Spontaneous
  Country: CN (occurrence: CN)
  Receive Date: 20240725
  Receipt Date: 20240729
  Transmission Date: 20241016
  Serious: Yes (Other)
  Sender: MERCK
  Company Number: CN-009507513-2407CHN011704

PATIENT
  Age: 46 Year
  Sex: Female
  Weight: 64 kg

DRUGS (2)
  1. JANUMET [Suspect]
     Active Substance: METFORMIN HYDROCHLORIDE\SITAGLIPTIN PHOSPHATE
     Indication: Blood glucose abnormal
     Dosage: 1 TABLET, BID
     Route: 048
     Dates: start: 20240629, end: 20240702
  2. JANUMET [Suspect]
     Active Substance: METFORMIN HYDROCHLORIDE\SITAGLIPTIN PHOSPHATE
     Indication: Type 2 diabetes mellitus

REACTIONS (14)
  - Urinary retention [Unknown]
  - Dizziness [Recovering/Resolving]
  - Nausea [Recovering/Resolving]
  - Vomiting [Recovering/Resolving]
  - Abdominal pain lower [Recovering/Resolving]
  - Diarrhoea [Recovering/Resolving]
  - Pollakiuria [Unknown]
  - Micturition urgency [Unknown]
  - Haematuria [Unknown]
  - Urine analysis abnormal [Unknown]
  - Gastrooesophageal reflux disease [Unknown]
  - Uterine dilation and curettage [Unknown]
  - Wound contamination [Unknown]
  - Headache [Unknown]

NARRATIVE: CASE EVENT DATE: 20240630
